FAERS Safety Report 24561295 (Version 1)
Quarter: 2024Q4

REPORT INFORMATION
  Report Type: Spontaneous
  Country: US (occurrence: None)
  Receive Date: 20241029
  Receipt Date: 20241029
  Transmission Date: 20250115
  Serious: Yes (Hospitalization)
  Sender: Public
  Company Number: None

PATIENT
  Age: 23 Year
  Sex: Male
  Weight: 135 kg

DRUGS (2)
  1. DROPERIDOL [Suspect]
     Active Substance: DROPERIDOL
  2. Prozac 60 [Concomitant]

REACTIONS (2)
  - Akathisia [None]
  - Emotional distress [None]

NARRATIVE: CASE EVENT DATE: 20240818
